FAERS Safety Report 5751099-1 (Version None)
Quarter: 2008Q2

REPORT INFORMATION
  Report Type: 
  Country: None (occurrence: None)
  Receive Date: 20080528
  Receipt Date: 20080522
  Transmission Date: 20081010
  Serious: Yes (Disabling)
  Sender: FDA-Public Use
  Company Number: CA-ASTRAZENECA-2008UW10519

PATIENT
  Age: 58 Year
  Sex: Male
  Weight: 61.8 kg

DRUGS (1)
  1. CRESTOR [Suspect]
     Indication: HYPERCHOLESTEROLAEMIA
     Route: 048
     Dates: start: 20080201, end: 20080301

REACTIONS (5)
  - ANXIETY [None]
  - ASTHENIA [None]
  - FATIGUE [None]
  - MALAISE [None]
  - MYALGIA [None]
